FAERS Safety Report 6121097-7 (Version None)
Quarter: 2009Q1

REPORT INFORMATION
  Report Type: 
  Country: None (occurrence: None)
  Receive Date: 20090312
  Receipt Date: 20090312
  Transmission Date: 20090719
  Serious: Yes (Hospitalization, Other)
  Sender: FDA-Public Use
  Company Number: None

PATIENT
  Age: 67 Year
  Sex: Female
  Weight: 117.9352 kg

DRUGS (1)
  1. AVELOX [Suspect]
     Indication: BRONCHITIS
     Dosage: 1 TABLET EVERY DAY PO
     Route: 048
     Dates: start: 20090102, end: 20090108

REACTIONS (9)
  - AGEUSIA [None]
  - ANOSMIA [None]
  - DYSPNOEA [None]
  - GLOSSITIS [None]
  - HEART RATE IRREGULAR [None]
  - OEDEMA PERIPHERAL [None]
  - OXYGEN SATURATION DECREASED [None]
  - PALPITATIONS [None]
  - PITTING OEDEMA [None]
